FAERS Safety Report 10360543 (Version 2)
Quarter: 2014Q3

REPORT INFORMATION
  Report Type: Spontaneous
  Country: IT (occurrence: None)
  Receive Date: 20140730
  Receipt Date: 20140812
  Transmission Date: 20150326
  Serious: Yes (Hospitalization)
  Sender: FDA-Public Use
  Company Number: NL01PV14.36682

PATIENT
  Age: 65 Year
  Sex: Male

DRUGS (2)
  1. ZOLPIDEM [Suspect]
     Active Substance: ZOLPIDEM\ZOLPIDEM TARTRATE
     Indication: DRUG ABUSE
     Dosage: 400 MG, TOTAL, ORAL 02/10/2014 TO 02/10/2014 THERAPY DATE
     Route: 048
     Dates: start: 20140210, end: 20140210
  2. DIAZEPAM. [Suspect]
     Active Substance: DIAZEPAM
     Indication: DRUG ABUSE
     Dosage: 40 GTT, TOTAL , ORAL 02/10/2014 TO 02/10/2014 THERAPY DATES
     Route: 048
     Dates: start: 20140210, end: 20140210

REACTIONS (3)
  - Suicide attempt [None]
  - Sopor [None]
  - Drug abuse [None]

NARRATIVE: CASE EVENT DATE: 20140210
